FAERS Safety Report 4376739-3 (Version None)
Quarter: 2004Q2

REPORT INFORMATION
  Report Type: 
  Country: None (occurrence: None)
  Receive Date: 20040608
  Receipt Date: 20040526
  Transmission Date: 20050107
  Serious: Yes (Hospitalization)
  Sender: FDA-Public Use
  Company Number: HQWYE135528MAY04

PATIENT
  Age: 57 Year
  Sex: Female

DRUGS (4)
  1. RAPAMUNE [Suspect]
     Indication: IMMUNOSUPPRESSANT DRUG THERAPY
     Dosage: 3 MG 1 X PER 1 DAY
  2. SIMULECT [Concomitant]
  3. PREDNISONE TAB [Concomitant]
  4. TACROLIMUS (TACROLIMUS) [Concomitant]

REACTIONS (8)
  - BIOPSY LUNG ABNORMAL [None]
  - BLOOD CREATININE INCREASED [None]
  - CHILLS [None]
  - NIGHT SWEATS [None]
  - PNEUMONIA [None]
  - PNEUMONITIS [None]
  - PULMONARY FIBROSIS [None]
  - PULMONARY TOXICITY [None]
